FAERS Safety Report 4299331-8 (Version None)
Quarter: 2004Q1

REPORT INFORMATION
  Report Type: 
  Country: None (occurrence: None)
  Receive Date: 20040219
  Receipt Date: 20031219
  Transmission Date: 20041129
  Serious: No
  Sender: FDA-Public Use
  Company Number: US-GLAXOSMITHKLINE-A0443765A

PATIENT
  Age: 48 Year
  Sex: Female

DRUGS (2)
  1. LOTRONEX [Suspect]
     Indication: IRRITABLE BOWEL SYNDROME
     Dosage: 1TAB TWICE PER DAY
     Route: 048
     Dates: start: 20030801
  2. NEXIUM [Concomitant]

REACTIONS (1)
  - DRUG INEFFECTIVE [None]
